FAERS Safety Report 7561571-X (Version None)
Quarter: 2011Q2

REPORT INFORMATION
  Report Type: 
  Country: None (occurrence: None)
  Receive Date: 20110621
  Receipt Date: 20100528
  Transmission Date: 20111010
  Serious: No
  Sender: FDA-Public Use
  Company Number: US-ASTRAZENECA-2010SE24787

PATIENT
  Age: 65 Year
  Sex: Female
  Weight: 72.6 kg

DRUGS (3)
  1. PULMICORT [Suspect]
     Indication: EMPHYSEMA
     Route: 055
     Dates: start: 20090501
  2. IPRATROPIUM BROMIDE [Concomitant]
     Indication: EMPHYSEMA
  3. ALBUTEROL SULFATE AUTOHALER [Concomitant]
     Indication: EMPHYSEMA

REACTIONS (4)
  - EYE IRRITATION [None]
  - EYE PRURITUS [None]
  - VISUAL IMPAIRMENT [None]
  - CATARACT [None]
